FAERS Safety Report 22585298 (Version 4)
Quarter: 2025Q3

REPORT INFORMATION
  Report Type: Report from Study
  Country: US (occurrence: US)
  Receive Date: 20230610
  Receipt Date: 20250903
  Transmission Date: 20251020
  Serious: No
  Sender: NOVARTIS
  Company Number: US-002147023-NVSC2023US130442

PATIENT
  Sex: Male

DRUGS (2)
  1. ENTRESTO [Suspect]
     Active Substance: SACUBITRIL\VALSARTAN
     Indication: Product used for unknown indication
     Route: 065
  2. FUROSEMIDE [Suspect]
     Active Substance: FUROSEMIDE
     Indication: Product used for unknown indication
     Route: 065

REACTIONS (3)
  - Fatigue [Recovering/Resolving]
  - Gingival swelling [Not Recovered/Not Resolved]
  - Decreased appetite [Not Recovered/Not Resolved]
